FAERS Safety Report 6956867-6 (Version None)
Quarter: 2010Q3

REPORT INFORMATION
  Report Type: 
  Country: None (occurrence: None)
  Receive Date: 20100830
  Receipt Date: 20100825
  Transmission Date: 20110219
  Serious: Yes (Other)
  Sender: FDA-Public Use
  Company Number: ES-MERCK-1008ESP00018

PATIENT
  Age: 74 Year
  Sex: Male

DRUGS (1)
  1. PRIMAXIN [Suspect]
     Indication: DEVICE RELATED INFECTION
     Route: 042
     Dates: start: 20050101, end: 20050101

REACTIONS (1)
  - TREATMENT FAILURE [None]
